FAERS Safety Report 7259202-1 (Version None)
Quarter: 2011Q1

REPORT INFORMATION
  Report Type: 
  Country: None (occurrence: None)
  Receive Date: 20110129
  Receipt Date: 20100813
  Transmission Date: 20110831
  Serious: No
  Sender: FDA-Public Use
  Company Number: US-ABBOTT-10P-163-0663934-00

PATIENT
  Age: 43 Year
  Sex: Male

DRUGS (10)
  1. NOVOLOG [Concomitant]
     Indication: BLOOD GLUCOSE INCREASED
     Dosage: PER SLIDING SCALE
  2. LISINOPRIL [Concomitant]
     Indication: HYPERTENSION
  3. HUMIRA [Suspect]
     Indication: PSORIASIS
     Dates: start: 20100601
  4. ALLOPURINOL [Concomitant]
     Indication: GOUT
     Dosage: 300 MG HALF A TABLET EVERY 2-3 DAYS
  5. ALLEGRA [Concomitant]
     Indication: HYPERSENSITIVITY
  6. CALCIUM CITRATE [Concomitant]
     Indication: PRODUCT USED FOR UNKNOWN INDICATION
  7. LEVEMIR [Concomitant]
     Indication: DIABETES MELLITUS
  8. MULTI-VITAMIN [Concomitant]
     Indication: PRODUCT USED FOR UNKNOWN INDICATION
  9. ASPIRIN [Concomitant]
     Indication: PRODUCT USED FOR UNKNOWN INDICATION
  10. CONCERTA [Concomitant]
     Indication: ATTENTION DEFICIT/HYPERACTIVITY DISORDER

REACTIONS (3)
  - ERYTHEMA [None]
  - STOMATITIS [None]
  - SKIN EXFOLIATION [None]
